FAERS Safety Report 19888548 (Version 1)
Quarter: 2021Q3

REPORT INFORMATION
  Report Type: Spontaneous
  Country: US (occurrence: US)
  Receive Date: 20210927
  Receipt Date: 20210927
  Transmission Date: 20211014
  Serious: No
  Sender: FDA-Public Use
  Company Number: US-KVK-TECH, INC-20210700088

PATIENT

DRUGS (3)
  1. OXYCODONE HYDROCHLORIDE TABLETS, USP [Suspect]
     Active Substance: OXYCODONE HYDROCHLORIDE
     Indication: NECK PAIN
     Dosage: TAKEN IT FOR ONE TIME
     Dates: start: 20210713
  2. OXYCODONE HYDROCHLORIDE TABLETS, USP [Suspect]
     Active Substance: OXYCODONE HYDROCHLORIDE
     Indication: PAIN IN EXTREMITY
  3. OXYCODONE HYDROCHLORIDE TABLETS, USP [Suspect]
     Active Substance: OXYCODONE HYDROCHLORIDE
     Indication: BACK PAIN

REACTIONS (1)
  - Drug ineffective [Unknown]

NARRATIVE: CASE EVENT DATE: 20210713
